FAERS Safety Report 24613999 (Version 2)
Quarter: 2024Q4

REPORT INFORMATION
  Report Type: Spontaneous
  Country: DE (occurrence: DE)
  Receive Date: 20241113
  Receipt Date: 20241126
  Transmission Date: 20250115
  Serious: Yes (Life-Threatening, Other)
  Sender: VERTEX
  Company Number: None

PATIENT
  Age: 18 Year
  Sex: Female
  Weight: 62 kg

DRUGS (3)
  1. ELEXACAFTOR\IVACAFTOR\TEZACAFTOR [Suspect]
     Active Substance: ELEXACAFTOR\IVACAFTOR\TEZACAFTOR
     Indication: Cystic fibrosis
     Dosage: 75MG IVA/50MG TEZA/100MG ELEXA, REGULAR, 2 TABS DAILY
     Route: 048
     Dates: start: 202009
  2. KALYDECO [Suspect]
     Active Substance: IVACAFTOR
     Indication: Cystic fibrosis
     Dosage: REGULAR, 1 TABLET DAILY
     Route: 048
     Dates: start: 20201001
  3. LIPASE [Concomitant]
     Active Substance: LIPASE
     Indication: Product used for unknown indication

REACTIONS (1)
  - Hodgkin^s disease nodular sclerosis [Unknown]

NARRATIVE: CASE EVENT DATE: 20240108
